FAERS Safety Report 23792089 (Version 1)
Quarter: 2024Q2

REPORT INFORMATION
  Report Type: Spontaneous
  Country: ES (occurrence: ES)
  Receive Date: 20240429
  Receipt Date: 20240429
  Transmission Date: 20240716
  Serious: Yes (Other)
  Sender: FDA-Public Use
  Company Number: ES-AEMPS-1509970

PATIENT
  Age: 64 Year
  Sex: Male

DRUGS (2)
  1. CEFUROXIME [Suspect]
     Active Substance: CEFUROXIME
     Indication: Urinary tract infection
     Dosage: 500 MILLIGRAM, EVERY OTHER DAY
     Route: 065
     Dates: start: 20240307, end: 20240308
  2. VALIUM [Suspect]
     Active Substance: DIAZEPAM
     Indication: Neck pain
     Dosage: UNK
     Route: 065
     Dates: start: 20240307

REACTIONS (1)
  - Lip swelling [Unknown]

NARRATIVE: CASE EVENT DATE: 20240308
